FAERS Safety Report 15358713 (Version 1)
Quarter: 2018Q3

REPORT INFORMATION
  Report Type: Spontaneous
  Country: US (occurrence: US)
  Receive Date: 20180906
  Receipt Date: 20180906
  Transmission Date: 20181010
  Serious: No
  Sender: FDA-Public Use
  Company Number: US-BIOMARINAP-US-2018-119683

PATIENT
  Age: 17 Year
  Sex: Female

DRUGS (1)
  1. ALDURAZYME [Suspect]
     Active Substance: LARONIDASE
     Indication: MUCOPOLYSACCHARIDOSIS I
     Dosage: UNK
     Route: 041
     Dates: start: 20180613

REACTIONS (3)
  - Oropharyngeal pain [Unknown]
  - Increased upper airway secretion [Unknown]
  - Throat irritation [Unknown]

NARRATIVE: CASE EVENT DATE: 20180825
